FAERS Safety Report 10621846 (Version 1)
Quarter: 2014Q4

REPORT INFORMATION
  Report Type: Spontaneous
  Country: US (occurrence: None)
  Receive Date: 20141201
  Receipt Date: 20141201
  Transmission Date: 20150529
  Serious: Yes (Other)
  Sender: FDA-Public Use
  Company Number: None

PATIENT
  Age: 55 Year
  Sex: Female

DRUGS (1)
  1. VISIPAQUE [Suspect]
     Active Substance: IODIXANOL

REACTIONS (1)
  - Urticaria [None]

NARRATIVE: CASE EVENT DATE: 20141121
